FAERS Safety Report 5254548-0 (Version None)
Quarter: 2007Q1

REPORT INFORMATION
  Report Type: 
  Country: None (occurrence: None)
  Receive Date: 20070302
  Receipt Date: 20070301
  Transmission Date: 20070707
  Serious: Yes (Hospitalization)
  Sender: FDA-Public Use
  Company Number: AU-BRISTOL-MYERS SQUIBB COMPANY-13696612

PATIENT
  Age: 68 Year
  Sex: Female

DRUGS (2)
  1. KARVEZIDE TABS 300MG/12.5MG [Suspect]
     Route: 048
     Dates: end: 20051116
  2. IRBESARTAN [Suspect]
     Route: 048
     Dates: start: 20051116, end: 20051120

REACTIONS (2)
  - HYPONATRAEMIA [None]
  - INAPPROPRIATE ANTIDIURETIC HORMONE SECRETION [None]
